FAERS Safety Report 10489381 (Version 1)
Quarter: 2014Q4

REPORT INFORMATION
  Report Type: Spontaneous
  Country: US (occurrence: None)
  Receive Date: 20141001
  Receipt Date: 20141001
  Transmission Date: 20150528
  Serious: Yes (Other)
  Sender: FDA-Public Use
  Company Number: None

PATIENT
  Age: 67 Year
  Sex: Female
  Weight: 103 kg

DRUGS (11)
  1. XARELTO [Suspect]
     Active Substance: RIVAROXABAN
     Indication: THROMBOSIS
     Dosage: 1 PILL QD ORAL
     Route: 048
     Dates: start: 20140401
  2. FENOFIBRATE. [Concomitant]
     Active Substance: FENOFIBRATE
  3. DOCUSATE [Concomitant]
     Active Substance: DOCUSATE
  4. INSULIN ASPART [Concomitant]
     Active Substance: INSULIN ASPART
  5. LEVETIRACETAM. [Concomitant]
     Active Substance: LEVETIRACETAM
  6. FERROUS SULFATE [Concomitant]
     Active Substance: FERROUS SULFATE\FERROUS SULFATE, DRIED
  7. ACETAMINOPHEN. [Concomitant]
     Active Substance: ACETAMINOPHEN
  8. DEXAMETHASONE. [Concomitant]
     Active Substance: DEXAMETHASONE
  9. EZETIMIBE. [Concomitant]
     Active Substance: EZETIMIBE
  10. INSULIN GLARGINE [Concomitant]
     Active Substance: INSULIN GLARGINE
  11. DULOXETINE [Concomitant]
     Active Substance: DULOXETINE

REACTIONS (3)
  - Asthenia [None]
  - Brain neoplasm [None]
  - Paraesthesia [None]

NARRATIVE: CASE EVENT DATE: 20140203
